FAERS Safety Report 13700956 (Version 1)
Quarter: 2017Q2

REPORT INFORMATION
  Report Type: Spontaneous
  Country: US (occurrence: US)
  Receive Date: 20170629
  Receipt Date: 20170629
  Transmission Date: 20170830
  Serious: No
  Sender: FDA-Public Use
  Company Number: US-ELI_LILLY_AND_COMPANY-US201706012809

PATIENT
  Sex: Male

DRUGS (4)
  1. AXIRON [Suspect]
     Active Substance: TESTOSTERONE
     Indication: BLOOD TESTOSTERONE DECREASED
     Dosage: 2 MG, DAILY
     Route: 065
     Dates: start: 201506
  2. AXIRON [Suspect]
     Active Substance: TESTOSTERONE
     Dosage: 3 MG, DAILY
     Route: 065
  3. LEXAPRO [Concomitant]
     Active Substance: ESCITALOPRAM OXALATE
     Indication: PRODUCT USED FOR UNKNOWN INDICATION
  4. METROGEL [Concomitant]
     Active Substance: METRONIDAZOLE
     Indication: ROSACEA

REACTIONS (1)
  - Blood testosterone decreased [Recovered/Resolved]
